FAERS Safety Report 5572003-5 (Version None)
Quarter: 2007Q4

REPORT INFORMATION
  Report Type: 
  Country: None (occurrence: None)
  Receive Date: 20071221
  Receipt Date: 20071217
  Transmission Date: 20080405
  Serious: Yes (Hospitalization)
  Sender: FDA-Public Use
  Company Number: US-BOEHRINGER INGELHEIM PHARMACEUTICALS, INC.-2007-BP-24346BP

PATIENT
  Sex: Female

DRUGS (4)
  1. SPIRIVA [Suspect]
     Route: 055
  2. COMBIVENT [Concomitant]
  3. PULMICORT [Concomitant]
  4. XOPENEX NEB [Concomitant]

REACTIONS (3)
  - CATARACT [None]
  - CONSTIPATION [None]
  - PALPITATIONS [None]
